FAERS Safety Report 15618534 (Version 2)
Quarter: 2018Q4

REPORT INFORMATION
  Report Type: Spontaneous
  Country: US (occurrence: US)
  Receive Date: 20181114
  Receipt Date: 20181120
  Transmission Date: 20190205
  Serious: Yes (Other)
  Sender: FDA-Public Use
  Company Number: US-009507513-1811USA005368

PATIENT

DRUGS (1)
  1. KEYTRUDA [Suspect]
     Active Substance: PEMBROLIZUMAB
     Indication: HODGKIN^S DISEASE
     Dosage: UNK

REACTIONS (10)
  - Vomiting [Unknown]
  - Palpitations [Unknown]
  - Nodule [Unknown]
  - Urticaria [Unknown]
  - Headache [Unknown]
  - Malignant neoplasm progression [Unknown]
  - Infusion related reaction [Unknown]
  - Pyrexia [Unknown]
  - Nausea [Unknown]
  - Diarrhoea [Unknown]
